FAERS Safety Report 22194723 (Version 1)
Quarter: 2023Q2

REPORT INFORMATION
  Report Type: Spontaneous
  Country: IT (occurrence: IT)
  Receive Date: 20230411
  Receipt Date: 20230411
  Transmission Date: 20230722
  Serious: Yes (Hospitalization, Other)
  Sender: FDA-Public Use
  Company Number: IT-MINISAL02-915824

PATIENT
  Age: 54 Year
  Sex: Male
  Weight: 70 kg

DRUGS (4)
  1. IBUPROFEN [Suspect]
     Active Substance: IBUPROFEN
     Indication: Muscle contracture
     Dosage: 600 MILLIGRAM (PER 5GG 1/DIE, POI AUMENTATA A 3/DIE PER ALTRI 5GG)(FOR 5 DAYS 1/DAY, THEN INCREASED
     Route: 048
     Dates: start: 20230212, end: 20230222
  2. THIOCOLCHICOSIDE [Suspect]
     Active Substance: THIOCOLCHICOSIDE
     Indication: Muscle contracture
     Dosage: 4 MILLIGRAM, ONCE A DAY ((PER 5GG MUSCORIL 4MG 1VOLTA/DIE)(FOR 5 DAYS MUSCORIL 4 MG ONCE/DAY)
     Route: 048
     Dates: start: 20230212, end: 20230217
  3. THIOCOLCHICOSIDE [Suspect]
     Active Substance: THIOCOLCHICOSIDE
     Dosage: 8 MILLIGRAM, 3 TIMES A DAY((AUMENTATO A 8MG PER 3 VOLTE/DIE. PZ AVEVA IN CASA CPS DA 4MG ED HA USATO
     Route: 048
     Dates: start: 20230218
  4. TACHIPIRINA [Suspect]
     Active Substance: ACETAMINOPHEN
     Indication: Muscle contracture
     Dosage: 1000 MILLIGRAM, 3 TIMES A DAY(2CP ASSIEME PER FARE 1000MG, RIPETENDO 3 VOLTE/DIE)
     Route: 048
     Dates: start: 20230212

REACTIONS (2)
  - Pain [Not Recovered/Not Resolved]
  - Treatment failure [Not Recovered/Not Resolved]

NARRATIVE: CASE EVENT DATE: 20230212
